FAERS Safety Report 7293989-7 (Version None)
Quarter: 2011Q1

REPORT INFORMATION
  Report Type: 
  Country: None (occurrence: None)
  Receive Date: 20110215
  Receipt Date: 20110211
  Transmission Date: 20110831
  Serious: Yes (Hospitalization, Other)
  Sender: FDA-Public Use
  Company Number: BE-PFIZER INC-2011032857

PATIENT
  Sex: Male

DRUGS (2)
  1. ANTIHYPERTENSIVES [Concomitant]
     Indication: HYPERTENSION
  2. EFFEXOR [Suspect]
     Route: 048

REACTIONS (3)
  - HYPOKALAEMIA [None]
  - MALAISE [None]
  - HYPONATRAEMIA [None]
